FAERS Safety Report 18798126 (Version 3)
Quarter: 2021Q2

REPORT INFORMATION
  Report Type: Spontaneous
  Country: US (occurrence: US)
  Receive Date: 20210128
  Receipt Date: 20210528
  Transmission Date: 20210717
  Serious: No
  Sender: FDA-Public Use
  Company Number: US-LUPIN PHARMACEUTICALS INC.-2021-00660

PATIENT
  Age: 63 Year
  Sex: Male

DRUGS (2)
  1. TESTOSTERONE TOPICAL SOLUTION, 30 MG/1.5 ML ACTUATION, CIII [Suspect]
     Active Substance: TESTOSTERONE
     Indication: BLOOD TESTOSTERONE DECREASED
     Dosage: USED FOR MANY YEARS
     Route: 061
  2. TESTOSTERONE TOPICAL SOLUTION, 30 MG/1.5 ML ACTUATION, CIII [Suspect]
     Active Substance: TESTOSTERONE
     Dosage: ALTERNATE 2 PUMPS AND 1 PUMP EVERY OTHER DAY
     Route: 061
     Dates: start: 202101, end: 20210114

REACTIONS (3)
  - Product odour abnormal [Unknown]
  - Erythema [Unknown]
  - Skin burning sensation [Unknown]

NARRATIVE: CASE EVENT DATE: 202101
